FAERS Safety Report 23346571 (Version 2)
Quarter: 2024Q1

REPORT INFORMATION
  Report Type: Spontaneous
  Country: JP (occurrence: JP)
  Receive Date: 20231228
  Receipt Date: 20240226
  Transmission Date: 20240410
  Serious: Yes (Death)
  Sender: FDA-Public Use
  Company Number: JP-CHUGAI-2023045950

PATIENT
  Age: 82 Year
  Sex: Male
  Weight: 63.3 kg

DRUGS (3)
  1. GAZYVA [Suspect]
     Active Substance: OBINUTUZUMAB
     Indication: Follicular lymphoma
     Route: 065
     Dates: start: 20230410, end: 20230830
  2. BENDAMUSTINE HYDROCHLORIDE [Suspect]
     Active Substance: BENDAMUSTINE HYDROCHLORIDE
     Indication: Follicular lymphoma
     Route: 065
     Dates: start: 20230410, end: 20230831
  3. RITUXIMAB [Concomitant]
     Active Substance: RITUXIMAB
     Route: 065

REACTIONS (2)
  - Organising pneumonia [Fatal]
  - COVID-19 pneumonia [Fatal]

NARRATIVE: CASE EVENT DATE: 20230903
